FAERS Safety Report 10461302 (Version 1)
Quarter: 2014Q3

REPORT INFORMATION
  Report Type: Spontaneous
  Country: US (occurrence: None)
  Receive Date: 20140917
  Receipt Date: 20140917
  Transmission Date: 20150326
  Serious: Yes (Disabling)
  Sender: FDA-Public Use
  Company Number: None

PATIENT
  Age: 44 Year
  Sex: Male
  Weight: 86.18 kg

DRUGS (1)
  1. LEVOFLOXACIN [Suspect]
     Active Substance: LEVOFLOXACIN
     Indication: INFECTION
     Dosage: 500 MG, 1 PILL, TWICE DAILY, BY MOUTH
     Route: 048
     Dates: start: 20130103, end: 20131021

REACTIONS (2)
  - Tendonitis [None]
  - Muscle spasms [None]

NARRATIVE: CASE EVENT DATE: 201301
